FAERS Safety Report 8553572-X (Version None)
Quarter: 2012Q3

REPORT INFORMATION
  Report Type: 
  Country: None (occurrence: None)
  Receive Date: 20120731
  Receipt Date: 20120726
  Transmission Date: 20120928
  Serious: No
  Sender: FDA-Public Use
  Company Number: US-PFIZER INC-2012159941

PATIENT
  Sex: Female
  Weight: 48.526 kg

DRUGS (4)
  1. DEXTROMETHORPHAN HBR/DOXYLAMINE SUCCINATE/PARACETAMOL [Concomitant]
     Indication: COUGH
     Dosage: UNK
  2. CHANTIX [Suspect]
     Indication: TOBACCO ABUSE
     Dosage: 0.5 MG, UNK
     Route: 048
     Dates: start: 20120101
  3. CHANTIX [Suspect]
     Dosage: 1 MG, 2X/DAY
     Route: 048
  4. CHANTIX [Suspect]
     Indication: SMOKING CESSATION THERAPY
     Dosage: 0.5 MG, 1X/DAY
     Route: 048
     Dates: start: 20120622, end: 20120101

REACTIONS (3)
  - IRRITABILITY [None]
  - AGGRESSION [None]
  - STRESS [None]
